FAERS Safety Report 6814410-6 (Version None)
Quarter: 2010Q3

REPORT INFORMATION
  Report Type: 
  Country: None (occurrence: None)
  Receive Date: 20100702
  Receipt Date: 20100622
  Transmission Date: 20110219
  Serious: Yes (Other)
  Sender: FDA-Public Use
  Company Number: CN-BRISTOL-MYERS SQUIBB COMPANY-15168818

PATIENT

DRUGS (3)
  1. CISPLATIN [Suspect]
     Dosage: 25MG/M SUP (2) ON DAY 1-3
  2. PEMETREXED DISODIUM [Suspect]
     Dosage: 25MG/M SUP (2) ON DAYS 1 AND 8
  3. RADIOTHERAPY [Suspect]
     Dosage: 1DOSAGE FORM=65 GY IN 25 FRACTIONS.

REACTIONS (1)
  - RECALL PHENOMENON [None]
